FAERS Safety Report 9774198 (Version 1)
Quarter: 2013Q4

REPORT INFORMATION
  Report Type: Spontaneous
  Country: FR (occurrence: FR)
  Receive Date: 20131220
  Receipt Date: 20131220
  Transmission Date: 20140711
  Serious: Yes (Hospitalization)
  Sender: FDA-Public Use
  Company Number: FR-ROCHE-1321636

PATIENT
  Age: 21 Year
  Sex: Male

DRUGS (1)
  1. CELLCEPT [Suspect]
     Indication: DERMATITIS ATOPIC
     Route: 048
     Dates: start: 201304, end: 20131118

REACTIONS (2)
  - Neutropenia [Recovered/Resolved]
  - Agranulocytosis [Recovered/Resolved]
